FAERS Safety Report 4833578-4 (Version None)
Quarter: 2005Q4

REPORT INFORMATION
  Report Type: 
  Country: None (occurrence: None)
  Receive Date: 20051121
  Receipt Date: 20050810
  Transmission Date: 20060501
  Serious: Yes (Hospitalization, Disabling, Other)
  Sender: FDA-Public Use
  Company Number: US-MERCK-0508USA02081

PATIENT
  Age: 50 Year
  Sex: Female
  Weight: 55 kg

DRUGS (1)
  1. VIOXX [Suspect]
     Indication: HERNIA PAIN
     Route: 048
     Dates: start: 20020901, end: 20031201

REACTIONS (10)
  - BLOOD PRESSURE INCREASED [None]
  - CARDIAC DISORDER [None]
  - CEREBROVASCULAR ACCIDENT [None]
  - CHEST PAIN [None]
  - DIFFICULTY IN WALKING [None]
  - DYSPNOEA [None]
  - HERNIA [None]
  - OVERDOSE [None]
  - THROMBOSIS [None]
  - TRANSIENT ISCHAEMIC ATTACK [None]
